FAERS Safety Report 7263340-7 (Version None)
Quarter: 2011Q1

REPORT INFORMATION
  Report Type: 
  Country: None (occurrence: None)
  Receive Date: 20110130
  Receipt Date: 20101005
  Transmission Date: 20110831
  Serious: No
  Sender: FDA-Public Use
  Company Number: US-ABBOTT-10P-163-0675875-00

PATIENT
  Age: 43 Year
  Sex: Female

DRUGS (2)
  1. HUMIRA [Suspect]
     Indication: PSORIASIS
     Dates: start: 20100901
  2. KARIVA [Concomitant]
     Indication: CONTRACEPTION

REACTIONS (5)
  - RHINORRHOEA [None]
  - HEADACHE [None]
  - OROPHARYNGEAL PAIN [None]
  - PYREXIA [None]
  - PAIN [None]
